FAERS Safety Report 4696825-8 (Version None)
Quarter: 2005Q2

REPORT INFORMATION
  Report Type: 
  Country: None (occurrence: None)
  Receive Date: 20050622
  Receipt Date: 20050608
  Transmission Date: 20051028
  Serious: Yes (Hospitalization, Other)
  Sender: FDA-Public Use
  Company Number: GB-JNJFOC-20050601997

PATIENT
  Sex: Female
  Weight: 77 kg

DRUGS (5)
  1. REMICADE [Suspect]
     Route: 042
  2. VIOXX [Concomitant]
  3. METHOTREXATE [Concomitant]
  4. CO-CODAMOL [Concomitant]
  5. CO-CODAMOL [Concomitant]

REACTIONS (1)
  - DIVERTICULITIS [None]
